FAERS Safety Report 7934872-0 (Version None)
Quarter: 2011Q4

REPORT INFORMATION
  Report Type: 
  Country: None (occurrence: None)
  Receive Date: 20111122
  Receipt Date: 20111110
  Transmission Date: 20120403
  Serious: Yes (Other)
  Sender: FDA-Public Use
  Company Number: PHHY2011AT54605

PATIENT
  Age: 46 Year
  Sex: Male

DRUGS (5)
  1. TRAMADOL HYDROCHLORIDE [Concomitant]
     Indication: LUMBAR SPINE FLATTENING
     Dosage: 200 MG, DAILY
     Route: 048
  2. CYMBALTA [Concomitant]
     Indication: DEPRESSION
     Dosage: 60 MG, DAILY
     Route: 048
  3. PRAMIPEXOLE DIHYDROCHLORIDE [Concomitant]
     Indication: RESTLESS LEGS SYNDROME
     Dosage: 0.44 MG, DAILY
     Route: 048
  4. TEGRETOL [Suspect]
     Indication: TRIGEMINAL NEURALGIA
     Dosage: 400 MG, UNK
     Dates: start: 20110525, end: 20110615
  5. GABAPENTIN [Concomitant]
     Indication: PAIN
     Dosage: 1200 MG, DAILY
     Route: 048

REACTIONS (12)
  - HYPOAESTHESIA [None]
  - SKIN LESION [None]
  - DRUG INTOLERANCE [None]
  - ERYTHEMA [None]
  - TEMPERATURE INTOLERANCE [None]
  - DRY SKIN [None]
  - SKIN DISORDER [None]
  - RASH [None]
  - ASTHMA [None]
  - OSTEOPOROSIS [None]
  - RASH PUSTULAR [None]
  - PRURITUS [None]
